FAERS Safety Report 25506074 (Version 1)
Quarter: 2025Q3

REPORT INFORMATION
  Report Type: Spontaneous
  Country: US (occurrence: US)
  Receive Date: 20250702
  Receipt Date: 20250702
  Transmission Date: 20251021
  Serious: Yes (Other)
  Sender: RADIUS PHARM
  Company Number: US-RADIUS HEALTH INC.-2024US008793

PATIENT
  Sex: Female

DRUGS (1)
  1. TYMLOS [Suspect]
     Active Substance: ABALOPARATIDE
     Indication: Product used for unknown indication
     Route: 058

REACTIONS (16)
  - Limb operation [Unknown]
  - Hip arthroplasty [Unknown]
  - Shoulder arthroplasty [Unknown]
  - COVID-19 [Unknown]
  - Herpes zoster [Unknown]
  - Chronic obstructive pulmonary disease [Unknown]
  - Upper limb fracture [Unknown]
  - Vitamin D deficiency [Unknown]
  - Vitamin D decreased [Unknown]
  - Osteoarthritis [Unknown]
  - Bone disorder [Unknown]
  - Emphysema [Unknown]
  - Injection site bruising [Unknown]
  - Tachycardia [Unknown]
  - Palpitations [Unknown]
  - Arthralgia [Unknown]
